FAERS Safety Report 19869329 (Version 1)
Quarter: 2021Q3

REPORT INFORMATION
  Report Type: Spontaneous
  Country: MX (occurrence: MX)
  Receive Date: 20210922
  Receipt Date: 20210922
  Transmission Date: 20211014
  Serious: Yes (Other)
  Sender: FDA-Public Use
  Company Number: MX-ALVOGEN-2021-ALVOGEN-117550

PATIENT
  Age: 735 Month
  Sex: Female
  Weight: 172 kg

DRUGS (2)
  1. ATENOLOL. [Suspect]
     Active Substance: ATENOLOL
     Indication: PRODUCT USED FOR UNKNOWN INDICATION
     Route: 065
  2. HYDROCHLOROTHIAZIDE/VALSARTAN [Concomitant]
     Active Substance: HYDROCHLOROTHIAZIDE\VALSARTAN
     Indication: PRODUCT USE IN UNAPPROVED INDICATION
     Dosage: 1/2 TABLET DOSAGE, DAILY
     Route: 065
     Dates: start: 201612

REACTIONS (7)
  - Blood pressure decreased [Unknown]
  - Dizziness [Unknown]
  - COVID-19 [Recovered/Resolved]
  - Anxiety [Unknown]
  - Typhoid fever [Recovered/Resolved]
  - Drug ineffective [Unknown]
  - Head discomfort [Unknown]

NARRATIVE: CASE EVENT DATE: 202107
